FAERS Safety Report 15449387 (Version 2)
Quarter: 2018Q4

REPORT INFORMATION
  Report Type: Spontaneous
  Country: JP (occurrence: JP)
  Receive Date: 20181001
  Receipt Date: 20181108
  Transmission Date: 20190204
  Serious: Yes (Life-Threatening, Hospitalization, Disabling, Other)
  Sender: FDA-Public Use
  Company Number: JP-TAKEDA-2018TJP024421

PATIENT
  Age: 87 Year
  Sex: Male
  Weight: 53 kg

DRUGS (2)
  1. INISYNC COMBINATION TABLETS [Suspect]
     Active Substance: ALOGLIPTIN BENZOATE\METFORMIN HYDROCHLORIDE
     Indication: TYPE 2 DIABETES MELLITUS
     Dosage: 1 DF, QD
     Route: 048
     Dates: start: 20180420, end: 20180919
  2. INSULIN GLARGINE [Concomitant]
     Active Substance: INSULIN GLARGINE
     Indication: TYPE 2 DIABETES MELLITUS
     Dosage: UNK UNK, QD
     Route: 058
     Dates: start: 20180109, end: 20180919

REACTIONS (11)
  - Hypotension [Unknown]
  - Acute abdomen [Unknown]
  - Off label use [Unknown]
  - Pneumonia [Unknown]
  - Aspiration [Unknown]
  - Pyrexia [Unknown]
  - Osteosclerosis [Unknown]
  - Gastrointestinal necrosis [Recovered/Resolved with Sequelae]
  - Bladder diverticulum [Unknown]
  - Urine output decreased [Unknown]
  - Intestinal obstruction [Recovered/Resolved with Sequelae]

NARRATIVE: CASE EVENT DATE: 20180420
